FAERS Safety Report 12066265 (Version 1)
Quarter: 2016Q1

REPORT INFORMATION
  Report Type: Spontaneous
  Country: US (occurrence: US)
  Receive Date: 20160211
  Receipt Date: 20160211
  Transmission Date: 20160526
  Serious: No
  Sender: FDA-Public Use
  Company Number: US-ABBVIE-16K-163-1533639-00

PATIENT
  Sex: Female
  Weight: 70.37 kg

DRUGS (4)
  1. HUMIRA [Suspect]
     Active Substance: ADALIMUMAB
     Route: 058
  2. HUMIRA [Suspect]
     Active Substance: ADALIMUMAB
     Route: 058
     Dates: start: 201511
  3. MULTIVITAMIN [Concomitant]
     Active Substance: VITAMINS
     Indication: PRODUCT USED FOR UNKNOWN INDICATION
  4. HUMIRA [Suspect]
     Active Substance: ADALIMUMAB
     Indication: ANKYLOSING SPONDYLITIS
     Route: 058
     Dates: start: 2013

REACTIONS (17)
  - Blood oestrogen decreased [Recovering/Resolving]
  - Disturbance in attention [Recovering/Resolving]
  - Weight fluctuation [Not Recovered/Not Resolved]
  - Rhinorrhoea [Not Recovered/Not Resolved]
  - Allergic sinusitis [Not Recovered/Not Resolved]
  - Premature menopause [Not Recovered/Not Resolved]
  - Menopausal symptoms [Recovering/Resolving]
  - Emotional disorder [Not Recovered/Not Resolved]
  - Menopause [Not Recovered/Not Resolved]
  - Hypomenorrhoea [Unknown]
  - Hot flush [Recovering/Resolving]
  - Joint swelling [Recovering/Resolving]
  - Headache [Not Recovered/Not Resolved]
  - Memory impairment [Recovering/Resolving]
  - Lacrimation increased [Not Recovered/Not Resolved]
  - Muscle tightness [Recovering/Resolving]
  - Ankylosing spondylitis [Recovered/Resolved]

NARRATIVE: CASE EVENT DATE: 2013
